FAERS Safety Report 7288382-7 (Version None)
Quarter: 2011Q1

REPORT INFORMATION
  Report Type: 
  Country: None (occurrence: None)
  Receive Date: 20110211
  Receipt Date: 20110209
  Transmission Date: 20110831
  Serious: Yes (Hospitalization)
  Sender: FDA-Public Use
  Company Number: A0766655A

PATIENT
  Sex: Male
  Weight: 94.5 kg

DRUGS (1)
  1. AVANDIA [Suspect]
     Dosage: 2MG TWICE PER DAY
     Route: 048
     Dates: start: 20040501, end: 20060501

REACTIONS (7)
  - STENT PLACEMENT [None]
  - CARDIAC PACEMAKER INSERTION [None]
  - CHEST PAIN [None]
  - PAIN [None]
  - ATRIOVENTRICULAR BLOCK [None]
  - DYSPNOEA [None]
  - ARTERIOSCLEROSIS [None]
